FAERS Safety Report 6185278-9 (Version None)
Quarter: 2009Q2

REPORT INFORMATION
  Report Type: 
  Country: None (occurrence: None)
  Receive Date: 20090511
  Receipt Date: 20090429
  Transmission Date: 20091009
  Serious: Yes (Life-Threatening, Hospitalization)
  Sender: FDA-Public Use
  Company Number: US-ROCHE-616639

PATIENT
  Sex: Male
  Weight: 79.4 kg

DRUGS (8)
  1. TAMIFLU [Suspect]
     Indication: INFLUENZA
     Route: 048
     Dates: start: 20090223, end: 20090224
  2. JANUMET [Concomitant]
     Dosage: DOSE: 50/1000
     Route: 048
  3. IBUPROFEN [Concomitant]
     Indication: DISCOMFORT
     Route: 048
  4. LISINOPRIL [Concomitant]
     Dosage: OTHER INDICATION:HYPERTENSION, DRUG:HCTZ, FREQUENCY:20/12.5,DAILY
     Route: 048
  5. NORVASC [Concomitant]
     Indication: HYPERTENSION
     Dosage: FREQUENCY: DAILY
     Route: 048
  6. ASPIRIN [Concomitant]
     Dosage: FREQUENCY: DAILY
     Route: 048
  7. MULTIVITAMIN NOS [Concomitant]
     Dosage: ONCE DAILY
     Route: 048
  8. METOPROLOL [Concomitant]
     Dosage: FREQUENCY: DAILY
     Route: 048

REACTIONS (6)
  - CHILLS [None]
  - HALLUCINATION [None]
  - HYPERHIDROSIS [None]
  - PLATELET COUNT DECREASED [None]
  - PYREXIA [None]
  - WHITE BLOOD CELL COUNT DECREASED [None]
